FAERS Safety Report 7949144-8 (Version None)
Quarter: 2011Q4

REPORT INFORMATION
  Report Type: 
  Country: None (occurrence: None)
  Receive Date: 20111130
  Receipt Date: 20111128
  Transmission Date: 20120403
  Serious: Yes (Life-Threatening, Hospitalization)
  Sender: FDA-Public Use
  Company Number: FR-B.I. PHARMACEUTICALS,INC./RIDGEFIELD-2011-FF-01107FF

PATIENT
  Sex: Male

DRUGS (6)
  1. ISOPTIN [Suspect]
     Dosage: 240 MG
     Route: 048
     Dates: end: 20111018
  2. MICARDIS HCT [Suspect]
     Dosage: 80MG/12.5MG
     Route: 048
     Dates: end: 20111018
  3. ADENURIC [Concomitant]
     Dosage: 80 MG
  4. METFORMIN HCL [Suspect]
     Dosage: 3000 MG
     Route: 048
     Dates: end: 20111018
  5. ASPIRIN [Concomitant]
     Dosage: 160 MG
  6. PLAVIX [Concomitant]
     Dosage: 75 MG

REACTIONS (5)
  - HYPERKALAEMIA [None]
  - LACTIC ACIDOSIS [None]
  - RENAL FAILURE [None]
  - BRADYCARDIA [None]
  - ATRIOVENTRICULAR BLOCK COMPLETE [None]
